FAERS Safety Report 6404065-7 (Version None)
Quarter: 2009Q4

REPORT INFORMATION
  Report Type: 
  Country: None (occurrence: None)
  Receive Date: 20091016
  Receipt Date: 20090909
  Transmission Date: 20100525
  Serious: No
  Sender: FDA-Public Use
  Company Number: US-ALEXION-A200900732

PATIENT
  Sex: Female

DRUGS (13)
  1. SOLIRIS [Suspect]
     Indication: PAROXYSMAL NOCTURNAL HAEMOGLOBINURIA
     Dosage: 600 MG, QW
     Route: 042
     Dates: start: 20070524, end: 20070613
  2. SOLIRIS [Suspect]
     Dosage: 900 MG, Q2W
     Route: 042
     Dates: start: 20070620
  3. BONIVA [Suspect]
     Dosage: 1 X MONTH
     Route: 048
     Dates: start: 20090827
  4. MULTIVITAMIN                       /00831701/ [Concomitant]
     Dosage: UNK
     Route: 048
  5. CALCIUM [Concomitant]
     Dosage: 600 MG, QD
     Route: 048
  6. FOLIC ACID [Concomitant]
     Dosage: 2 MG, QD
     Route: 048
  7. COUMADIN [Concomitant]
     Dosage: 5 MG, QD
     Route: 048
  8. CELEXA [Concomitant]
     Dosage: 20 MG, QD
     Route: 048
  9. TRAZODONE [Concomitant]
     Dosage: 50 MG, PRN
     Route: 048
  10. FLEXERIL [Concomitant]
     Dosage: 10 MG, PRN
     Route: 048
  11. PERCOCET [Concomitant]
     Indication: BONE PAIN
     Dosage: UNK
     Route: 048
  12. PERCOCET [Concomitant]
     Indication: HEADACHE
  13. TYLENOL (CAPLET) [Concomitant]
     Indication: MIGRAINE
     Dosage: UNK
     Route: 048

REACTIONS (3)
  - BONE PAIN [None]
  - HEADACHE [None]
  - MUSCULOSKELETAL STIFFNESS [None]
